FAERS Safety Report 21060677 (Version 2)
Quarter: 2022Q3

REPORT INFORMATION
  Report Type: Other
  Country: JP (occurrence: JP)
  Receive Date: 20220708
  Receipt Date: 20220921
  Transmission Date: 20221026
  Serious: Yes (Other)
  Sender: FDA-Public Use
  Company Number: JP-CHUGAI-2022025504

PATIENT
  Age: 71 Year
  Sex: Male
  Weight: 53.2 kg

DRUGS (3)
  1. AVASTIN [Suspect]
     Active Substance: BEVACIZUMAB
     Indication: Rectal adenocarcinoma
     Dosage: 7.5 MILLIGRAM/KILOGRAM, ONCE/3WEEKS
     Route: 041
  2. GIMERACIL\OTERACIL\TEGAFUR [Concomitant]
     Active Substance: GIMERACIL\OTERACIL\TEGAFUR
     Indication: Rectal adenocarcinoma
     Dosage: UNK
     Route: 048
     Dates: start: 201907
  3. OXALIPLATIN [Concomitant]
     Active Substance: OXALIPLATIN
     Indication: Rectal adenocarcinoma
     Dosage: UNK
     Route: 041
     Dates: start: 201907

REACTIONS (5)
  - Ileus paralytic [Recovered/Resolved]
  - Pneumonia aspiration [Recovered/Resolved]
  - Necrotising fasciitis [Recovered/Resolved]
  - Wound dehiscence [Recovered/Resolved]
  - Metastases to lung [Unknown]

NARRATIVE: CASE EVENT DATE: 20200101
